FAERS Safety Report 7952643-6 (Version None)
Quarter: 2011Q4

REPORT INFORMATION
  Report Type: 
  Country: None (occurrence: None)
  Receive Date: 20111201
  Receipt Date: 20111129
  Transmission Date: 20120403
  Serious: Yes (Other)
  Sender: FDA-Public Use
  Company Number: US-PFIZER INC-2011291095

PATIENT
  Sex: Female

DRUGS (2)
  1. CHANTIX [Suspect]
     Dosage: 2 TABLETS IN AM, 1 TABLET IN PM
  2. CHANTIX [Suspect]
     Dosage: 1 TABLET ONCE DAILY

REACTIONS (3)
  - SUICIDAL IDEATION [None]
  - THINKING ABNORMAL [None]
  - NIGHTMARE [None]
